FAERS Safety Report 4319884-0 (Version None)
Quarter: 2004Q1

REPORT INFORMATION
  Report Type: 
  Country: None (occurrence: None)
  Receive Date: 20040319
  Receipt Date: 20040310
  Transmission Date: 20041129
  Serious: Yes (Other)
  Sender: FDA-Public Use
  Company Number: PHEH2004US02951

PATIENT
  Age: 56 Year
  Sex: Male

DRUGS (2)
  1. LAMISIL [Suspect]
     Indication: NAIL TINEA
     Dosage: 250 MG, ONCE/SINGLE
     Route: 048
     Dates: start: 20040107, end: 20040108
  2. PERIOSTAT [Concomitant]

REACTIONS (2)
  - DEAFNESS [None]
  - DEAFNESS UNILATERAL [None]
